FAERS Safety Report 24192313 (Version 4)
Quarter: 2025Q2

REPORT INFORMATION
  Report Type: Report from Study
  Country: US (occurrence: US)
  Receive Date: 20240809
  Receipt Date: 20250513
  Transmission Date: 20250717
  Serious: Yes (Other)
  Sender: NOVARTIS
  Company Number: US-002147023-NVSC2024US125866

PATIENT
  Sex: Male

DRUGS (1)
  1. COSENTYX [Suspect]
     Active Substance: SECUKINUMAB
     Indication: Product used for unknown indication
     Dosage: 300 MG, QMO
     Route: 065
     Dates: start: 20241105, end: 20250114

REACTIONS (5)
  - Nephrolithiasis [Unknown]
  - Illness [Unknown]
  - Psoriasis [Unknown]
  - Device leakage [Unknown]
  - Device malfunction [Unknown]
